FAERS Safety Report 6738639-0 (Version None)
Quarter: 2010Q2

REPORT INFORMATION
  Report Type: 
  Country: None (occurrence: None)
  Receive Date: 20100524
  Receipt Date: 20100514
  Transmission Date: 20101027
  Serious: Yes (Other)
  Sender: FDA-Public Use
  Company Number: CA-PFIZER INC-2010052893

PATIENT
  Age: 55 Year
  Sex: Female
  Weight: 52 kg

DRUGS (8)
  1. LIPITOR [Suspect]
     Indication: BLOOD CHOLESTEROL INCREASED
     Dosage: 10 MG, 1X/DAY
     Dates: start: 20100419
  2. PREDNISONE [Concomitant]
     Dosage: UNK
  3. EFFEXOR [Concomitant]
     Dosage: UNK
  4. XANAX [Concomitant]
     Dosage: UNK
  5. TEMAZEPAM [Concomitant]
     Dosage: 30 MG, UNK
  6. AMPICILLIN [Concomitant]
     Indication: ORAL INFECTION
     Dosage: UNK
  7. NITROFURANTOIN [Concomitant]
     Indication: CYSTITIS
     Dosage: UNK
     Dates: start: 20100419
  8. NITROFURANTOIN [Concomitant]
     Indication: URINARY TRACT INFECTION

REACTIONS (3)
  - DEPRESSION [None]
  - STRESS [None]
  - SUICIDAL IDEATION [None]
